FAERS Safety Report 9646066 (Version 3)
Quarter: 2014Q1

REPORT INFORMATION
  Report Type: Spontaneous
  Country: US (occurrence: None)
  Receive Date: 20131023
  Receipt Date: 20140218
  Transmission Date: 20141002
  Serious: Yes (Hospitalization)
  Sender: FDA-Public Use
  Company Number: HA13-348-AE

PATIENT
  Age: 82 Year
  Sex: Female
  Weight: 62 kg

DRUGS (14)
  1. NAPROXEN [Suspect]
     Indication: RHEUMATOID ARTHRITIS
     Dosage: HI DOSE TID , ORAL
     Route: 048
     Dates: start: 20110720, end: 20130202
  2. NAPROXEN [Suspect]
     Indication: OSTEOARTHRITIS
     Dosage: HI DOSE TID , ORAL
     Route: 048
     Dates: start: 20110720, end: 20130202
  3. CELECOXIB [Suspect]
     Indication: RHEUMATOID ARTHRITIS
     Route: 048
     Dates: start: 20110720, end: 20130202
  4. CELECOXIB [Suspect]
     Indication: OSTEOARTHRITIS
     Route: 048
     Dates: start: 20110720, end: 20130202
  5. ESOMEPRAZOLE (NEXIUM) [Concomitant]
  6. CLOPIDOGREL SULFATE (PLAVIX) [Concomitant]
  7. HYDROCHLOROTHIAZIDE [Concomitant]
  8. LATANOPROST (XALATAN) [Concomitant]
  9. SIMVASTATIN [Concomitant]
  10. CALCIUM [Concomitant]
  11. TRIAMTERENE (TRIAMTERENE AND HYDROCHLOROTHIAZIDE) [Concomitant]
  12. TRAMADOL [Concomitant]
  13. IBUPROFEN [Suspect]
     Route: 048
     Dates: start: 20110720, end: 20130202
  14. PLACEBO [Suspect]
     Route: 048
     Dates: start: 20110720, end: 20130202

REACTIONS (7)
  - Diverticulum intestinal haemorrhagic [None]
  - Dizziness [None]
  - Gastrointestinal haemorrhage [None]
  - Fall [None]
  - Gastrointestinal arteriovenous malformation [None]
  - Intestinal ulcer [None]
  - Large intestinal ulcer [None]
